FAERS Safety Report 16525614 (Version 2)
Quarter: 2020Q1

REPORT INFORMATION
  Report Type: Spontaneous
  Country: US (occurrence: US)
  Receive Date: 20190703
  Receipt Date: 20200113
  Transmission Date: 20200409
  Serious: Yes (Other)
  Sender: FDA-Public Use
  Company Number: US-SA-2019SA174797

PATIENT
  Age: 45 Year
  Sex: Female
  Weight: 124.54 kg

DRUGS (3)
  1. NEOSAR [Concomitant]
     Active Substance: CYCLOPHOSPHAMIDE
     Indication: BREAST CANCER FEMALE
  2. TAXOTERE [Suspect]
     Active Substance: DOCETAXEL
     Indication: BREAST CANCER FEMALE
     Dosage: 10 MG, Q3W
     Route: 042
     Dates: start: 20090223, end: 20090223
  3. TAXOTERE [Suspect]
     Active Substance: DOCETAXEL
     Dosage: 10 MG, Q3W
     Route: 042
     Dates: start: 20090630, end: 20090630

REACTIONS (2)
  - Emotional distress [Unknown]
  - Alopecia [Recovering/Resolving]

NARRATIVE: CASE EVENT DATE: 200901
